FAERS Safety Report 7296621-1 (Version None)
Quarter: 2011Q1

REPORT INFORMATION
  Report Type: 
  Country: None (occurrence: None)
  Receive Date: 20110216
  Receipt Date: 20110208
  Transmission Date: 20110831
  Serious: Yes (Other)
  Sender: FDA-Public Use
  Company Number: PHHY2010US86174

PATIENT
  Sex: Female

DRUGS (10)
  1. MOTRIN [Concomitant]
  2. LIPITOR [Concomitant]
  3. EXTAVIA [Suspect]
     Indication: MULTIPLE SCLEROSIS
     Dosage: 0.25 MG, QOD
     Route: 058
     Dates: start: 20100827
  4. NEURONTIN [Concomitant]
  5. METFORMIN [Concomitant]
  6. TYLENOL [Concomitant]
  7. LOTREL [Concomitant]
     Dosage: UNK
  8. NEXIUM [Concomitant]
  9. PROVIGIL [Concomitant]
  10. BACLOFEN [Concomitant]

REACTIONS (5)
  - INJECTION SITE ERYTHEMA [None]
  - INJECTION SITE MASS [None]
  - SKIN CANCER [None]
  - INJECTION SITE PAIN [None]
  - INJECTION SITE IRRITATION [None]
